FAERS Safety Report 14982617 (Version 2)
Quarter: 2018Q3

REPORT INFORMATION
  Report Type: Spontaneous
  Country: FR (occurrence: FR)
  Receive Date: 20180607
  Receipt Date: 20180703
  Transmission Date: 20181010
  Serious: Yes (Life-Threatening, Other)
  Sender: FDA-Public Use
  Company Number: FR-BRISTOL-MYERS SQUIBB COMPANY-BMS-2018-050895

PATIENT
  Sex: Female
  Weight: 60 kg

DRUGS (1)
  1. ELIQUIS [Suspect]
     Active Substance: APIXABAN
     Indication: PULMONARY EMBOLISM
     Dosage: 10 MG, BID
     Route: 048
     Dates: start: 20180327, end: 20180328

REACTIONS (3)
  - Drug ineffective [Unknown]
  - Pulmonary embolism [Recovering/Resolving]
  - Thrombosis [Recovering/Resolving]
